FAERS Safety Report 21965215 (Version 1)
Quarter: 2023Q1

REPORT INFORMATION
  Report Type: Report from Study
  Country: CO (occurrence: CO)
  Receive Date: 20230208
  Receipt Date: 20230208
  Transmission Date: 20230417
  Serious: Yes (Other)
  Sender: FDA-Public Use
  Company Number: CO-ABBVIE-4298173

PATIENT
  Sex: Male
  Weight: 80 kg

DRUGS (1)
  1. ZEMPLAR [Suspect]
     Active Substance: PARICALCITOL
     Indication: Hyperparathyroidism secondary
     Route: 042
     Dates: start: 20210728, end: 20221129

REACTIONS (2)
  - Arteriovenous fistula operation [Not Recovered/Not Resolved]
  - Arteriovenous fistula site complication [Not Recovered/Not Resolved]

NARRATIVE: CASE EVENT DATE: 20220101
